FAERS Safety Report 9033370 (Version 1)
Quarter: 2013Q1

REPORT INFORMATION
  Report Type: Spontaneous
  Country: JP (occurrence: JP)
  Receive Date: 20130128
  Receipt Date: 20130128
  Transmission Date: 20140127
  Serious: Yes (Death, Hospitalization, Other)
  Sender: FDA-Public Use
  Company Number: PHHY2013JP006702

PATIENT
  Age: 64 Year
  Sex: Female

DRUGS (13)
  1. ZOLEDRONATE [Suspect]
     Indication: METASTASES TO BONE
     Dosage: 4 MG, EVERY 4 WEEKS
     Route: 042
  2. SENNOSIDES A+B [Suspect]
     Indication: CONSTIPATION
     Dosage: 12 MG, QD
     Route: 048
     Dates: start: 20110224
  3. LOXOPROFEN [Suspect]
     Dosage: 60 MG, TID
     Route: 048
  4. DICLOFENAC [Suspect]
     Dosage: UNK UKN, UNK
     Dates: end: 20110306
  5. ACETAMINOPHEN [Suspect]
  6. ADO-TRASTUZUMAB EMTANSINE [Suspect]
     Indication: BREAST CANCER
     Dosage: 3.6 MG/KG, ONCE IN 3 WEEKS
     Route: 042
     Dates: start: 20110127, end: 20110127
  7. THYROID [Suspect]
     Dosage: 75 UG, QD
     Route: 048
  8. ALFACALCIDOL [Suspect]
     Indication: OSTEOPOROSIS
     Dosage: 25 MG, QD
     Route: 048
  9. OXYCODONE [Concomitant]
     Indication: PAIN
     Dosage: 5 MG, BID
     Route: 048
     Dates: start: 20110224, end: 20110311
  10. PYRIDOXAL PHOSPHATE [Concomitant]
     Indication: HYPOAESTHESIA
     Dosage: 20 MG, TID
     Route: 048
     Dates: start: 20091203
  11. MAGNESIUM OXIDE [Concomitant]
     Dosage: 110 MG, TID
     Route: 048
     Dates: start: 20091203
  12. MAGNESIUM OXIDE [Concomitant]
     Dosage: 330 MG, TID
     Route: 048
     Dates: start: 20110224
  13. MECOBALAMIN [Concomitant]

REACTIONS (9)
  - Breast cancer [Fatal]
  - Metastases to meninges [Fatal]
  - Metastases to bone [Fatal]
  - Metastases to central nervous system [Fatal]
  - Malignant neoplasm progression [Fatal]
  - Peripheral sensory neuropathy [Not Recovered/Not Resolved]
  - Pancytopenia [Unknown]
  - Pain in extremity [Not Recovered/Not Resolved]
  - Abdominal distension [Unknown]
